FAERS Safety Report 23130215 (Version 1)
Quarter: 2023Q4

REPORT INFORMATION
  Report Type: Spontaneous
  Country: DE (occurrence: DE)
  Receive Date: 20231031
  Receipt Date: 20231031
  Transmission Date: 20240110
  Serious: Yes (Life-Threatening, Hospitalization, Other)
  Sender: FDA-Public Use
  Company Number: DE-FreseniusKabi-FK202317152

PATIENT
  Sex: Male
  Weight: 76 kg

DRUGS (28)
  1. ACETAMINOPHEN [Suspect]
     Active Substance: ACETAMINOPHEN
     Indication: Product used for unknown indication
     Dosage: DOSE DESCRIPTION : 1 G
     Route: 042
  2. AZACITIDINE [Suspect]
     Active Substance: AZACITIDINE
     Indication: Acute myeloid leukaemia
     Dosage: 140 MG
     Route: 058
     Dates: end: 20230104
  3. AZACITIDINE [Suspect]
     Active Substance: AZACITIDINE
     Dosage: 140 MG
     Route: 058
     Dates: start: 20230105, end: 20230105
  4. AZACITIDINE [Suspect]
     Active Substance: AZACITIDINE
     Dosage: 140 MG
     Route: 058
     Dates: start: 20221230, end: 20221230
  5. AZACITIDINE [Suspect]
     Active Substance: AZACITIDINE
     Dosage: 140 MG
     Route: 058
     Dates: start: 20221231, end: 20221231
  6. AZACITIDINE [Suspect]
     Active Substance: AZACITIDINE
     Dosage: 140 MG
     Route: 058
     Dates: start: 20230103, end: 20230103
  7. AZACITIDINE [Suspect]
     Active Substance: AZACITIDINE
     Dosage: 137 MG
     Route: 058
     Dates: start: 20230128, end: 20230128
  8. AZACITIDINE [Suspect]
     Active Substance: AZACITIDINE
     Dosage: 137 MG
     Route: 058
  9. AZACITIDINE [Suspect]
     Active Substance: AZACITIDINE
     Dosage: 137 MG
     Route: 058
     Dates: start: 20230127, end: 20230127
  10. AZACITIDINE [Suspect]
     Active Substance: AZACITIDINE
     Dosage: 137 MG
     Route: 058
     Dates: start: 20230201, end: 20230201
  11. AZACITIDINE [Suspect]
     Active Substance: AZACITIDINE
     Dosage: 137 MG
     Route: 058
     Dates: start: 20230202, end: 20230202
  12. AZACITIDINE [Suspect]
     Active Substance: AZACITIDINE
     Dosage: 140 MG
     Route: 058
     Dates: start: 20230102, end: 20230102
  13. AZACITIDINE [Suspect]
     Active Substance: AZACITIDINE
     Dosage: 137 MG
     Route: 058
     Dates: start: 20230131, end: 20230131
  14. AZACITIDINE [Suspect]
     Active Substance: AZACITIDINE
     Dosage: 140 MG
     Route: 058
     Dates: start: 20230101, end: 20230101
  15. AZACITIDINE [Suspect]
     Active Substance: AZACITIDINE
     Dosage: 137 MG
     Route: 058
     Dates: start: 20230130, end: 20230130
  16. METAMIZOLE SODIUM [Suspect]
     Active Substance: METAMIZOLE SODIUM
     Indication: Product used for unknown indication
     Dosage: DOSE DESCRIPTION : 1 G
     Route: 042
  17. VENETOCLAX [Suspect]
     Active Substance: VENETOCLAX
     Indication: Acute myeloid leukaemia
     Dosage: 200 MG PER DAY?DOSE DESCRIPTION : 200 MG, QD
     Route: 048
  18. VENETOCLAX [Suspect]
     Active Substance: VENETOCLAX
     Dosage: 400 MG PER DAY?DOSE DESCRIPTION : 400 MG, QD
     Route: 048
     Dates: start: 20230124, end: 20230125
  19. VENETOCLAX [Suspect]
     Active Substance: VENETOCLAX
     Dosage: 400 MG PER DAY?DOSE DESCRIPTION : 400 MG, QD
     Route: 048
     Dates: start: 20230126, end: 20230202
  20. VENETOCLAX [Suspect]
     Active Substance: VENETOCLAX
     Dosage: 70 MG PER DAY?DOSE DESCRIPTION : 70 MG, QD
     Route: 048
  21. CANDESARTAN [CANDESARTAN] [Concomitant]
     Indication: Product used for unknown indication
     Dosage: DOSE DESCRIPTION : UNK?DRUG STILL BEING ADMINISTERED
     Route: 065
     Dates: start: 20221104
  22. ESCITALOPRAM [ESCITALOPRAM] [Concomitant]
     Indication: Product used for unknown indication
     Dosage: DOSE DESCRIPTION : UNK
     Route: 065
  23. GLANDOMED [CHLORHEXIDINE GLUCONATE, MACROGOL, SACCHARIN SODIUM, SODIUM [Concomitant]
     Indication: Product used for unknown indication
     Dosage: DOSE DESCRIPTION : UNK
     Route: 065
     Dates: start: 20230108, end: 20230108
  24. POSACONAZOL [POSACONAZOL] [Concomitant]
     Indication: Product used for unknown indication
     Dosage: DOSE DESCRIPTION : UNK
     Route: 065
     Dates: start: 20221102
  25. AMOXICILLIN/CLAVULANIC ACID AB [AMOXICILLIN TRIHYDRATE, CLAVULANIC ACI [Concomitant]
     Indication: Product used for unknown indication
     Dosage: DOSE DESCRIPTION : UNK
     Route: 065
     Dates: start: 20221212, end: 20221217
  26. ESCITALOPRAM OXALATE [ESCITALOPRAM OXALATE] [Concomitant]
     Indication: Product used for unknown indication
     Dosage: DOSE DESCRIPTION : UNK
     Route: 065
     Dates: start: 20230108, end: 20230208
  27. MIRTAZAPINE [MIRTAZAPINE] [Concomitant]
     Indication: Product used for unknown indication
     Dosage: DOSE DESCRIPTION : UNK?DRUG STILL BEING ADMINISTERED
     Route: 065
  28. ENOXAPARIN [ENOXAPARIN] [Concomitant]
     Indication: Product used for unknown indication
     Dosage: DOSE DESCRIPTION : UNK
     Route: 065
     Dates: start: 20230109, end: 20230208

REACTIONS (2)
  - Thrombocytopenia [Recovered/Resolved]
  - Febrile neutropenia [Recovered/Resolved]

NARRATIVE: CASE EVENT DATE: 20230101
